FAERS Safety Report 21395363 (Version 1)
Quarter: 2022Q3

REPORT INFORMATION
  Report Type: Spontaneous
  Country: JP (occurrence: JP)
  Receive Date: 20220930
  Receipt Date: 20220930
  Transmission Date: 20221027
  Serious: Yes (Other)
  Sender: FDA-Public Use
  Company Number: JP-MSD-M2022-40637

PATIENT
  Age: 5 Decade
  Sex: Male

DRUGS (5)
  1. ISENTRESS [Suspect]
     Active Substance: RALTEGRAVIR POTASSIUM
     Indication: HIV infection
     Dosage: 400 MILLIGRAM, BID
     Route: 048
     Dates: start: 201305, end: 201809
  2. ISENTRESS [Suspect]
     Active Substance: RALTEGRAVIR POTASSIUM
     Indication: HIV infection
     Dosage: 1200 MILLIGRAM, QD
     Route: 048
     Dates: start: 201809
  3. EDURANT [Suspect]
     Active Substance: RILPIVIRINE HYDROCHLORIDE
     Indication: HIV infection
     Dosage: 1 DOSAGE FORM, QD
     Route: 048
     Dates: start: 201305, end: 201602
  4. TRUVADA [Concomitant]
     Active Substance: EMTRICITABINE\TENOFOVIR DISOPROXIL FUMARATE
     Indication: Assisted reproductive technology
     Dosage: UNK
     Route: 065
     Dates: start: 200902
  5. ENTECAVIR [Concomitant]
     Active Substance: ENTECAVIR
     Dosage: 1 MILLIGRAM
     Route: 048
     Dates: start: 201309

REACTIONS (2)
  - Congenital cystic kidney disease [Unknown]
  - Renal disorder [Unknown]

NARRATIVE: CASE EVENT DATE: 20201101
